FAERS Safety Report 9252795 (Version 2)
Quarter: 2013Q3

REPORT INFORMATION
  Report Type: Report from Study
  Country: US (occurrence: US)
  Receive Date: 20130424
  Receipt Date: 20130828
  Transmission Date: 20140515
  Serious: Yes (Hospitalization)
  Sender: FDA-Public Use
  Company Number: US-UCBSA-083410

PATIENT
  Age: 50 Year
  Sex: Female
  Weight: 130 kg

DRUGS (16)
  1. CERTOLIZUMAB PEGOL [Suspect]
     Indication: SPONDYLITIS
     Route: 058
     Dates: start: 20111223, end: 20130402
  2. CERTOLIZUMAB PEGOL [Suspect]
     Indication: SPONDYLITIS
     Route: 058
     Dates: start: 20130514
  3. METFORMIN [Concomitant]
     Indication: TYPE 2 DIABETES MELLITUS
     Route: 048
     Dates: start: 2009
  4. ENALAPRIL [Concomitant]
     Indication: HYPERTENSION
     Route: 048
     Dates: start: 2001
  5. AMLODIPINE [Concomitant]
     Indication: HYPERTENSION
     Route: 048
     Dates: start: 201102
  6. PREDNISONE [Concomitant]
     Indication: SPONDYLITIS
     Route: 048
     Dates: start: 201102
  7. SIMVASTATIIN [Concomitant]
     Indication: HYPERCHOLESTEROLAEMIA
     Route: 048
     Dates: start: 2009
  8. GLIMEPIRIDE [Concomitant]
     Indication: TYPE 2 DIABETES MELLITUS
     Dosage: 2 MG BID/ 1MG QD
     Route: 048
     Dates: start: 2009
  9. PLAVIX [Concomitant]
     Indication: CORONARY ARTERY DISEASE
     Route: 048
     Dates: start: 201004
  10. FAMOTIDINE [Concomitant]
     Indication: DYSPEPSIA
     Route: 048
     Dates: start: 2010, end: 20130402
  11. METOPROLOL [Concomitant]
     Indication: HYPERTENSION
     Route: 048
     Dates: start: 2010
  12. VENLAFAXINE [Concomitant]
     Route: 048
     Dates: start: 2009
  13. ERGOCALCIFEROL [Concomitant]
     Indication: VITAMIN D DEFICIENCY
     Route: 048
     Dates: start: 201103, end: 20130331
  14. CINNAMON [Concomitant]
     Indication: MEDICAL DIET
     Route: 048
     Dates: start: 201103, end: 20130331
  15. OXYCONTIN [Concomitant]
     Indication: SPONDYLITIS
     Route: 048
     Dates: start: 20120220
  16. FLEXERIL [Concomitant]
     Indication: INTERVERTEBRAL DISC PROTRUSION
     Route: 048
     Dates: start: 20120414, end: 2013

REACTIONS (1)
  - Cellulitis [Recovered/Resolved]
